FAERS Safety Report 14159638 (Version 7)
Quarter: 2018Q2

REPORT INFORMATION
  Report Type: Report from Study
  Country: US (occurrence: US)
  Receive Date: 20171103
  Receipt Date: 20180430
  Transmission Date: 20180711
  Serious: Yes (Hospitalization)
  Sender: FDA-Public Use
  Company Number: US-ACTELION-A-NJ2016-146477

PATIENT
  Age: 58 Year
  Sex: Female
  Weight: 115.65 kg

DRUGS (63)
  1. APIXABAN [Concomitant]
     Active Substance: APIXABAN
     Dosage: 5 MG, UNK
     Dates: start: 20170113
  2. BUMETANIDE. [Concomitant]
     Active Substance: BUMETANIDE
     Dosage: 1 MG, UNK
     Dates: start: 20170113, end: 20171220
  3. CARVEDILOL. [Concomitant]
     Active Substance: CARVEDILOL
     Dosage: 3.125 MG, UNK
     Dates: start: 20170113
  4. FERROUS SULFATE. [Concomitant]
     Active Substance: FERROUS SULFATE
     Dosage: 324/325, 65 MG QD
     Dates: start: 20170921
  5. FOLIC ACID. [Concomitant]
     Active Substance: FOLIC ACID
     Dosage: 1 MG, Q6HRS
     Dates: start: 20170113, end: 20171012
  6. PREDNISONE. [Concomitant]
     Active Substance: PREDNISONE
     Dosage: 10 MG, UNK
     Dates: start: 20170113, end: 20171220
  7. CYCLOSPORIN [Concomitant]
     Active Substance: CYCLOSPORINE
     Dosage: 0.05 %, UNK
     Route: 047
  8. HYDROCODONE BITARTRATE AND ACETAMINOPHEN [Concomitant]
     Active Substance: ACETAMINOPHEN\HYDROCODONE BITARTRATE
     Dosage: 5-325 MG, PRN
     Dates: start: 20170918, end: 20171122
  9. ADEMPAS [Concomitant]
     Active Substance: RIOCIGUAT
     Dosage: 1.5 MG, UNK
  10. AZELASTINE. [Concomitant]
     Active Substance: AZELASTINE HYDROCHLORIDE
     Dosage: 137 MCG, UNK
     Dates: start: 20170113, end: 20171027
  11. BUDESONIDE W/FORMOTEROL [Concomitant]
     Active Substance: BUDESONIDE\FORMOTEROL
     Dosage: 160-4.5 MCG
     Dates: start: 20170113
  12. ERGOCALCIFEROL. [Concomitant]
     Active Substance: ERGOCALCIFEROL
     Dosage: 500000 U, UNK
     Dates: start: 20170113, end: 20171030
  13. TRAMADOL. [Concomitant]
     Active Substance: TRAMADOL
     Dosage: 50 MG, UNK
     Dates: start: 20170113, end: 20171116
  14. LEVOFLOXACIN. [Concomitant]
     Active Substance: LEVOFLOXACIN
     Dosage: 750 MG, UNK
     Dates: start: 20170828
  15. DALIRESP [Concomitant]
     Active Substance: ROFLUMILAST
     Dosage: 500 MCG, QD
     Dates: start: 20170911, end: 20171013
  16. ADEMPAS [Concomitant]
     Active Substance: RIOCIGUAT
     Dosage: 2.5 MG, TID
     Dates: start: 20171002
  17. NYSTATIN CO. [Concomitant]
     Dosage: 100000 U/ML, UNK
     Dates: start: 20170113, end: 20171116
  18. OXYBUTYNIN. [Concomitant]
     Active Substance: OXYBUTYNIN CHLORIDE
     Dosage: 5 MG, BID
     Dates: start: 20170113, end: 20171115
  19. PROMETHAZINE - CODEINE [Concomitant]
     Active Substance: CODEINE\PROMETHAZINE
     Dosage: 6.25-10 M G/5ML
     Dates: start: 20170113, end: 20180102
  20. PSEUDOEPHEDRINE [Concomitant]
     Active Substance: PSEUDOEPHEDRINE
     Dosage: 30 MG, UNK
     Dates: start: 20170113
  21. VALSARTAN. [Concomitant]
     Active Substance: VALSARTAN
     Dosage: 160 MG, UNK
     Dates: start: 20170113
  22. ZOSYN [Concomitant]
     Active Substance: PIPERACILLIN SODIUM\TAZOBACTAM SODIUM
     Dosage: UNK
     Dates: start: 20170113
  23. POTASSIUM CHLORIDE. [Concomitant]
     Active Substance: POTASSIUM CHLORIDE
     Dosage: 20 MEQ, UNK
     Dates: start: 20170703, end: 20171109
  24. TRIAMCINOLONE ACETATE [Concomitant]
     Active Substance: TRIAMCINOLONE ACETONIDE
     Dosage: 0.1 %, UNK
     Dates: start: 20170703, end: 20171116
  25. ALENDRONATE ACCORD [Concomitant]
     Dosage: 70 MG, UNK
     Dates: start: 20170803
  26. BENZONATATE. [Concomitant]
     Active Substance: BENZONATATE
     Dosage: 100 MG, UNK
     Dates: start: 20170329, end: 20171116
  27. OPSUMIT [Suspect]
     Active Substance: MACITENTAN
     Indication: PULMONARY ARTERIAL HYPERTENSION
     Dosage: 10 MG, QD
     Route: 048
     Dates: start: 20161028, end: 20180315
  28. AMOXICILLIN. [Concomitant]
     Active Substance: AMOXICILLIN
     Dosage: 500 MG, UNK
     Dates: start: 20170113
  29. CIPROFLOXACIN. [Concomitant]
     Active Substance: CIPROFLOXACIN
     Dosage: UNK
     Dates: start: 20170113
  30. CYCLOSPORINE. [Concomitant]
     Active Substance: CYCLOSPORINE
     Dosage: UNK
     Dates: start: 20170113
  31. SOLU-MEDROL [Concomitant]
     Active Substance: METHYLPREDNISOLONE SODIUM SUCCINATE
     Dosage: UNK
     Dates: start: 20170113
  32. TIZANIDINE. [Concomitant]
     Active Substance: TIZANIDINE
     Dosage: 4 MG, UNK
     Dates: start: 20170113
  33. DULOXETINE. [Concomitant]
     Active Substance: DULOXETINE
     Dosage: 30 MG, UNK
  34. CEPHALEXIN. [Concomitant]
     Active Substance: CEPHALEXIN
     Dosage: 500 MG, UNK
     Dates: start: 20170518
  35. DILTIAZEM. [Concomitant]
     Active Substance: DILTIAZEM
  36. RANITIDINE. [Concomitant]
     Active Substance: RANITIDINE
     Dosage: 300 MG, QPM
     Dates: start: 20170921, end: 20171116
  37. ADEMPAS [Concomitant]
     Active Substance: RIOCIGUAT
     Dosage: 1 UNK, UNK
  38. DEXTROMETHORPHAN HYDROBROMIDE W/GUAIFENESIN [Concomitant]
     Dosage: UNK
     Dates: start: 20170113
  39. IPRATROPIUM W/SALBUTAMOL [Concomitant]
     Dosage: 0.5 MG-2.5 MG/3 ML
     Dates: start: 20170524, end: 20171116
  40. PREDNISONE. [Concomitant]
     Active Substance: PREDNISONE
     Dosage: 25 - 30MG ALTERNATING
  41. PROMETHAZINE [Concomitant]
     Active Substance: PROMETHAZINE\PROMETHAZINE HYDROCHLORIDE
     Dosage: 25 MG, UNK
     Dates: start: 20170113, end: 20180416
  42. CYANOCOBALAMIN. [Concomitant]
     Active Substance: CYANOCOBALAMIN
     Dosage: 1000 MCG/ML
     Dates: start: 20170626
  43. SPIRIVA [Concomitant]
     Active Substance: TIOTROPIUM BROMIDE MONOHYDRATE
     Dosage: 18 UNK, UNK
     Dates: start: 20170918, end: 20171013
  44. BUFFERED ASPIRIN [Concomitant]
     Active Substance: ASPIRIN
     Dosage: 81 MG, UNK
     Dates: start: 20170113
  45. LIDOCAINE VISCOUS [Concomitant]
     Active Substance: LIDOCAINE HYDROCHLORIDE
     Dosage: 2 %, UNK
     Dates: start: 20170113
  46. ONDANSETRON [Concomitant]
     Active Substance: ONDANSETRON
     Dosage: 4 MG, UNK
     Dates: start: 20170113, end: 20171012
  47. TIOTROPIUM [Concomitant]
     Active Substance: TIOTROPIUM
     Dosage: UNK
     Dates: start: 20170113
  48. ELIQUIS [Concomitant]
     Active Substance: APIXABAN
  49. OXYGEN. [Concomitant]
     Active Substance: OXYGEN
     Indication: PRODUCT USED FOR UNKNOWN INDICATION
     Route: 065
  50. ADEMPAS [Concomitant]
     Active Substance: RIOCIGUAT
     Dosage: 0.5 MG, UNK
     Dates: start: 20170703
  51. ACETAMINOPHEN. [Concomitant]
     Active Substance: ACETAMINOPHEN
     Dosage: 500 MG, UNK
     Dates: start: 20170113
  52. ALBUTEROL. [Concomitant]
     Active Substance: ALBUTEROL
     Dosage: 90 MCG, UNK
     Dates: start: 20170113
  53. ESOMEPRAZOLE [Concomitant]
     Active Substance: ESOMEPRAZOLE
     Dosage: 40 MG, UNK
     Dates: start: 20170524
  54. METHOTREXATE. [Concomitant]
     Active Substance: METHOTREXATE
     Dosage: 2.5 MG, 4 TABS ON SATURDAY, 3 TABS ON SUNDAY
     Dates: start: 20170113, end: 20171012
  55. LIFITEGRAST [Concomitant]
     Active Substance: LIFITEGRAST
     Dosage: UNK
     Dates: start: 20170409
  56. METOPROLOL SUCCINAT ACINO [Concomitant]
     Dosage: 2.5 MG, UNK
     Dates: start: 20171010, end: 20171109
  57. AZATHIOPRINE. [Concomitant]
     Active Substance: AZATHIOPRINE
     Dosage: 50 MG, UNK
     Dates: start: 20170113
  58. FLUTICASONE. [Concomitant]
     Active Substance: FLUTICASONE
     Dosage: 50 MCG, UNK
     Dates: start: 20170524, end: 20171116
  59. IPRATROPIUM [Concomitant]
     Active Substance: IPRATROPIUM
     Dosage: UNK
     Dates: start: 20170113, end: 20171027
  60. LIDOCAINE 5% EXTRA [Concomitant]
     Dosage: UNK
     Dates: start: 20170113
  61. PREDNISONE. [Concomitant]
     Active Substance: PREDNISONE
     Dosage: 20 MG, UNK
  62. ROFLUMILAST. [Concomitant]
     Active Substance: ROFLUMILAST
  63. DULOXETIN 1A PHARMA [Concomitant]
     Dosage: 30 MG, QD
     Dates: start: 20170921, end: 20180326

REACTIONS (85)
  - Renal failure [Unknown]
  - Dizziness [Unknown]
  - Haemoptysis [Recovered/Resolved]
  - Encephalopathy [Recovered/Resolved]
  - Blood urea increased [Unknown]
  - Nausea [Recovered/Resolved]
  - Laceration [Recovered/Resolved]
  - Nasal dryness [Unknown]
  - Pleural effusion [Recovered/Resolved]
  - Oxygen therapy [Unknown]
  - Feeling abnormal [Recovered/Resolved]
  - Cellulitis [Recovered/Resolved]
  - Peripheral swelling [Unknown]
  - Pyrexia [Recovered/Resolved]
  - Feeling hot [Recovered/Resolved]
  - Dyspnoea exertional [Unknown]
  - Dysphagia [Unknown]
  - Ear infection [Unknown]
  - Fatigue [Unknown]
  - Productive cough [Recovered/Resolved]
  - Tachycardia [Unknown]
  - Atrial fibrillation [Recovered/Resolved]
  - Cardiac ablation [Unknown]
  - Scleritis [Unknown]
  - Conjunctival haemorrhage [Unknown]
  - Sleep apnoea syndrome [Unknown]
  - Cough [Unknown]
  - Palpitations [Unknown]
  - Oxygen consumption increased [Recovered/Resolved]
  - Oxygen saturation decreased [Not Recovered/Not Resolved]
  - Painful respiration [Recovered/Resolved]
  - Sputum increased [Recovered/Resolved]
  - Fluid overload [Unknown]
  - Diarrhoea [Unknown]
  - Orthopnoea [Unknown]
  - Hypokalaemia [Unknown]
  - Supraventricular tachycardia [Unknown]
  - Pulmonary fibrosis [Unknown]
  - Alanine aminotransferase increased [Recovered/Resolved]
  - N-terminal prohormone brain natriuretic peptide increased [Recovered/Resolved]
  - Obesity [Unknown]
  - Somnolence [Unknown]
  - Pneumonia [Recovered/Resolved]
  - Asthenia [Recovered/Resolved]
  - Bronchitis [Recovered/Resolved]
  - Acute respiratory failure [Unknown]
  - Respiratory distress [Recovering/Resolving]
  - Swelling face [Unknown]
  - Chronic obstructive pulmonary disease [Unknown]
  - Hypoacusis [Unknown]
  - Vomiting [Recovered/Resolved]
  - Rhinitis allergic [Unknown]
  - Pain [Recovered/Resolved]
  - Chest pain [Recovered/Resolved]
  - Acute kidney injury [Unknown]
  - Back pain [Recovered/Resolved]
  - Pleurisy [Recovered/Resolved]
  - Anxiety [Recovering/Resolving]
  - Erythema [Recovered/Resolved]
  - Weight increased [Unknown]
  - Pulmonary embolism [Unknown]
  - Eye pain [Unknown]
  - Oedema peripheral [Unknown]
  - Purulence [Recovered/Resolved]
  - Cardiac failure acute [Recovered/Resolved]
  - Condition aggravated [Recovering/Resolving]
  - Chills [Recovered/Resolved]
  - Sepsis [Unknown]
  - Pulmonary arterial hypertension [Unknown]
  - Headache [Unknown]
  - Flushing [Unknown]
  - Urinary incontinence [Unknown]
  - Hypoventilation [Unknown]
  - Alpha haemolytic streptococcal infection [Unknown]
  - Dyspnoea [Unknown]
  - Hypoxia [Unknown]
  - Atrial flutter [Recovered/Resolved]
  - Hypotension [Unknown]
  - Secretion discharge [Recovered/Resolved]
  - Pulmonary oedema [Recovered/Resolved]
  - Abdominal pain [Unknown]
  - Hyperglycaemia [Unknown]
  - Wheezing [Unknown]
  - Leukocytosis [Unknown]
  - Tachypnoea [Unknown]

NARRATIVE: CASE EVENT DATE: 20161031
